FAERS Safety Report 6649698-8 (Version None)
Quarter: 2010Q1

REPORT INFORMATION
  Report Type: 
  Country: None (occurrence: None)
  Receive Date: 20100324
  Receipt Date: 20090831
  Transmission Date: 20100710
  Serious: No
  Sender: FDA-Public Use
  Company Number: US-AMGEN-KDL362343

PATIENT
  Sex: Female

DRUGS (3)
  1. NEUPOGEN [Suspect]
     Indication: CHEMOTHERAPY
     Dates: start: 20090419, end: 20090623
  2. NEULASTA [Suspect]
     Indication: CHEMOTHERAPY
     Dates: start: 20081117
  3. DACOGEN [Concomitant]

REACTIONS (1)
  - ASTHMA [None]
